FAERS Safety Report 7190799-6 (Version None)
Quarter: 2010Q4

REPORT INFORMATION
  Report Type: 
  Country: None (occurrence: None)
  Receive Date: 20101222
  Receipt Date: 20101222
  Transmission Date: 20110411
  Serious: No
  Sender: FDA-Public Use
  Company Number: None

PATIENT
  Sex: Female
  Weight: 61.2356 kg

DRUGS (1)
  1. LEVOTHYROXINE SODIUM [Suspect]
     Indication: HYPOTHYROIDISM
     Dosage: 50 MCG 6 DAYS PER WK PO ; 25 MCG 1 DAY/WK PO
     Route: 048
     Dates: start: 20091001, end: 20101101

REACTIONS (1)
  - ALOPECIA [None]
